FAERS Safety Report 25619366 (Version 1)
Quarter: 2025Q3

REPORT INFORMATION
  Report Type: Spontaneous
  Country: US (occurrence: None)
  Receive Date: 20250729
  Receipt Date: 20250729
  Transmission Date: 20251020
  Serious: Yes (Life-Threatening, Hospitalization)
  Sender: FDA-CTU
  Company Number: None

PATIENT
  Age: 82 Year
  Sex: Male
  Weight: 80.1 kg

DRUGS (2)
  1. KISUNLA [Suspect]
     Active Substance: DONANEMAB-AZBT
     Indication: Dementia Alzheimer^s type
     Dosage: OTHER FREQUENCY : Q 4 WEEKS;?
     Route: 042
     Dates: start: 20250729, end: 20250729
  2. KISUNLA [Concomitant]
     Active Substance: DONANEMAB-AZBT
     Dates: start: 20250102, end: 20250729

REACTIONS (7)
  - Dizziness [None]
  - Vision blurred [None]
  - Blood pressure decreased [None]
  - Heart rate irregular [None]
  - Pallor [None]
  - Feeling cold [None]
  - Chills [None]

NARRATIVE: CASE EVENT DATE: 20250729
